FAERS Safety Report 22372480 (Version 1)
Quarter: 2023Q2

REPORT INFORMATION
  Report Type: Spontaneous
  Country: JP (occurrence: JP)
  Receive Date: 20230526
  Receipt Date: 20230526
  Transmission Date: 20230722
  Serious: Yes (Other)
  Sender: FDA-Public Use
  Company Number: JP-MLMSERVICE-20230505-4264618-1

PATIENT
  Age: 75 Year
  Sex: Female

DRUGS (3)
  1. GEMZAR [Suspect]
     Active Substance: GEMCITABINE HYDROCHLORIDE
     Indication: Bladder cancer
     Dosage: FIRST COURSE
     Route: 041
     Dates: start: 2018, end: 2018
  2. CISPLATIN [Suspect]
     Active Substance: CISPLATIN
     Indication: Bladder cancer
     Dosage: FIRST COURSE
     Route: 065
     Dates: start: 2018, end: 2018
  3. PREDNISOLONE [Concomitant]
     Active Substance: PREDNISOLONE
     Indication: Systemic lupus erythematosus
     Route: 048

REACTIONS (4)
  - Sacroiliitis [Unknown]
  - Infective spondylitis [Unknown]
  - Abscess limb [Unknown]
  - Arthritis bacterial [Unknown]

NARRATIVE: CASE EVENT DATE: 20180101
